FAERS Safety Report 10170170 (Version 2)
Quarter: 2014Q2

REPORT INFORMATION
  Report Type: Spontaneous
  Country: FR (occurrence: FR)
  Receive Date: 20140513
  Receipt Date: 20140527
  Transmission Date: 20141212
  Serious: Yes (Hospitalization)
  Sender: FDA-Public Use
  Company Number: FR-BRISTOL-MYERS SQUIBB COMPANY-20717534

PATIENT
  Sex: Male

DRUGS (1)
  1. ETOPOPHOS [Suspect]
     Dates: start: 201403

REACTIONS (1)
  - Renal failure acute [Recovered/Resolved]
